FAERS Safety Report 6424700-7 (Version None)
Quarter: 2009Q4

REPORT INFORMATION
  Report Type: 
  Country: None (occurrence: None)
  Receive Date: 20091029
  Receipt Date: 20091021
  Transmission Date: 20100525
  Serious: Yes (Hospitalization)
  Sender: FDA-Public Use
  Company Number: GXKR2009FR11021

PATIENT
  Age: 43 Year
  Sex: Female

DRUGS (4)
  1. DEXTROPROPOXYPHENE (NGX) (DEXTROPROPOXYPHENE) UNKNOWN [Suspect]
     Indication: SCIATICA
     Dates: start: 20070101
  2. CHLOROQUINE PHOSPHATE [Suspect]
     Indication: CUTANEOUS LUPUS ERYTHEMATOSUS
     Dosage: 200 MG/DAY (CUMULATIVE DOSE WAS 225G), UNKNOWN
     Dates: start: 20031101
  3. OFLOXACIN [Concomitant]
  4. KETOPROFEN [Concomitant]

REACTIONS (9)
  - ATRIOVENTRICULAR BLOCK COMPLETE [None]
  - BUNDLE BRANCH BLOCK LEFT [None]
  - BUNDLE BRANCH BLOCK RIGHT [None]
  - CARDIOTOXICITY [None]
  - DRUG INTERACTION [None]
  - DRUG TOXICITY [None]
  - SCIATICA [None]
  - SYNCOPE [None]
  - VENTRICULAR HYPOKINESIA [None]
